FAERS Safety Report 11604567 (Version 1)
Quarter: 2015Q3

REPORT INFORMATION
  Report Type: Spontaneous
  Country: US (occurrence: US)
  Receive Date: 20150916
  Receipt Date: 20150916
  Transmission Date: 20151125
  Serious: No
  Sender: FDA-Public Use
  Company Number: US-ELI_LILLY_AND_COMPANY-US201405000246

PATIENT
  Sex: Female

DRUGS (3)
  1. PRENATAL VITAMINS                  /01549301/ [Concomitant]
     Active Substance: VITAMINS
     Dosage: UNK
  2. HUMALOG [Suspect]
     Active Substance: INSULIN LISPRO
  3. HUMALOG [Suspect]
     Active Substance: INSULIN LISPRO
     Indication: GESTATIONAL DIABETES
     Dosage: UNK UNK, PRN
     Route: 065

REACTIONS (6)
  - Postpartum disorder [Unknown]
  - Blood iron decreased [Unknown]
  - Diabetic complication [Unknown]
  - Blood glucose increased [Unknown]
  - Exposure during pregnancy [Unknown]
  - Hypothyroidism [Unknown]
